FAERS Safety Report 7899960-6 (Version None)
Quarter: 2011Q4

REPORT INFORMATION
  Report Type: 
  Country: None (occurrence: None)
  Receive Date: 20111107
  Receipt Date: 20111024
  Transmission Date: 20120403
  Serious: No
  Sender: FDA-Public Use
  Company Number: US-AMGEN-USASP2011045245

PATIENT
  Age: 62 Year
  Sex: Male

DRUGS (2)
  1. METHOTREXATE [Concomitant]
     Dosage: UNK
  2. ENBREL [Suspect]
     Indication: RHEUMATOID ARTHRITIS
     Dosage: 50 MG, QWK
     Dates: start: 20110601

REACTIONS (6)
  - CONTUSION [None]
  - MUSCLE SPASMS [None]
  - INFLUENZA [None]
  - ASTHENIA [None]
  - RHEUMATOID ARTHRITIS [None]
  - GASTROENTERITIS VIRAL [None]
